FAERS Safety Report 4933342-1 (Version None)
Quarter: 2006Q1

REPORT INFORMATION
  Report Type: 
  Country: None (occurrence: None)
  Receive Date: 20060306
  Receipt Date: 20050930
  Transmission Date: 20060701
  Serious: Yes (Hospitalization)
  Sender: FDA-Public Use
  Company Number: US-MERCK-0510USA00799

PATIENT
  Age: 51 Year
  Sex: Male
  Weight: 91 kg

DRUGS (3)
  1. VIOXX [Suspect]
     Indication: INFLAMMATION
     Route: 048
     Dates: start: 20020211, end: 20021028
  2. VIOXX [Suspect]
     Route: 048
     Dates: start: 20020211, end: 20021028
  3. VICODIN [Concomitant]
     Route: 065

REACTIONS (16)
  - ARRHYTHMIA [None]
  - BACK PAIN [None]
  - CARDIOVASCULAR DISORDER [None]
  - CEREBROVASCULAR ACCIDENT [None]
  - CHEST PAIN [None]
  - DEPRESSION [None]
  - HYPERTENSION [None]
  - INJURY [None]
  - INTERVERTEBRAL DISC DEGENERATION [None]
  - MUSCLE SPASMS [None]
  - MYOCARDIAL INFARCTION [None]
  - NEURALGIA [None]
  - ORGAN FAILURE [None]
  - OVERDOSE [None]
  - PULMONARY EMBOLISM [None]
  - THROMBOSIS [None]
